FAERS Safety Report 6291691-1 (Version None)
Quarter: 2009Q3

REPORT INFORMATION
  Report Type: 
  Country: None (occurrence: None)
  Receive Date: 20090730
  Receipt Date: 20061013
  Transmission Date: 20100115
  Serious: Yes (Hospitalization, Other)
  Sender: FDA-Public Use
  Company Number: US-ASTRAZENECA-2005UW15686

PATIENT
  Age: 47 Year
  Sex: Female
  Weight: 91.2 kg

DRUGS (127)
  1. SEROQUEL [Suspect]
     Route: 048
     Dates: start: 20000201, end: 20040601
  2. SEROQUEL [Suspect]
     Route: 048
     Dates: start: 20030813
  3. SEROQUEL [Suspect]
     Dosage: 25 MG - 225 MG
     Route: 048
     Dates: start: 20030813
  4. RISPERDAL [Suspect]
     Indication: HALLUCINATION, AUDITORY
     Route: 048
     Dates: start: 20000208, end: 20040601
  5. ZYPREXA [Suspect]
     Dates: start: 20000201, end: 20040601
  6. PROZAC [Concomitant]
     Indication: DEPRESSION
     Dosage: FERQUENCY: TWO TIMES A DAY, TOTAL DAILY DOSE: 40 MG
     Dates: start: 20051101
  7. PROZAC [Concomitant]
  8. DAYPRO [Concomitant]
     Dosage: FREQUENCY: DAILY
  9. AMITRIPTYLINE HCL [Concomitant]
  10. MONOPRIL [Concomitant]
  11. PEPCID [Concomitant]
  12. TYLENOL PM [Concomitant]
  13. CHLORTHALIDONE [Concomitant]
     Route: 048
  14. SPIRONOLACTONE [Concomitant]
     Indication: ANGIOEDEMA
     Route: 048
  15. SPIRONOLACTONE [Concomitant]
     Route: 048
  16. ALPHAGAN [Concomitant]
     Indication: GLAUCOMA
     Route: 047
  17. ALPHAGAN [Concomitant]
     Route: 047
  18. PREVACID [Concomitant]
     Indication: GASTROOESOPHAGEAL REFLUX DISEASE
     Route: 048
  19. PREVACID [Concomitant]
  20. ASCORBIC ACID [Concomitant]
     Route: 048
  21. CYCLOBENZAPRINE HCL [Concomitant]
     Route: 048
  22. LEXAPRO [Concomitant]
     Route: 048
  23. VISTARIL [Concomitant]
  24. GLUCOTROL XL [Concomitant]
     Route: 048
  25. GLUCOTROL XL [Concomitant]
     Route: 048
  26. LORAZEPAM [Concomitant]
     Dosage: PRN
     Route: 048
  27. LORAZEPAM [Concomitant]
     Route: 048
  28. EFFEXOR [Concomitant]
     Dosage: 225 MG QAM AND 150 MG HS, FREQUENCY: TWO TIMES A DAY, TOTAL DAILY DOSE: 375 MG
  29. EFFEXOR [Concomitant]
     Route: 048
  30. AMBIEN [Concomitant]
     Dosage: 1 1/2 FREQUENCY: AT NIGHT, DOSE AS USED: 5 MG
     Route: 048
  31. AMBIEN [Concomitant]
     Route: 048
  32. FLUOCINONIDE [Concomitant]
     Dosage: FREQUENCY: AS REQUIRED
  33. DETROL LA [Concomitant]
     Route: 048
  34. CLONAZEPAM [Concomitant]
     Route: 048
  35. WELLBUTRIN XL [Concomitant]
     Route: 048
  36. WELLBUTRIN XL [Concomitant]
     Route: 048
  37. WELLBUTRIN XL [Concomitant]
     Route: 048
  38. TRAMADOL HCL [Concomitant]
     Route: 048
  39. ZANAFLEX [Concomitant]
     Indication: INTERVERTEBRAL DISC DEGENERATION
     Route: 048
  40. FUROSEMIDE [Concomitant]
  41. ALLEGRA [Concomitant]
     Dosage: 60-120 MG, FREQUENCY: EVERY 12 HOURS
     Route: 048
  42. CIPRO [Concomitant]
     Route: 048
  43. DIFLUCAN [Concomitant]
     Route: 048
  44. DIFLUCAN [Concomitant]
     Route: 048
  45. BACTRIM [Concomitant]
     Dosage: 800-1600 MG,  FREQUENCY: TWO TIMES A DAY
     Route: 048
  46. ACIPHEX [Concomitant]
     Route: 048
  47. CATAFLAM [Concomitant]
     Dosage: BID-TID, DOSE AS USED: 50 MG
     Route: 048
  48. DURAPHEN DM [Concomitant]
     Dosage: 40-20-1200 MG EVERY 12HR.  FREQUENCY: TWO TIMES A DAY
     Route: 048
  49. ELIDEL [Concomitant]
     Route: 061
  50. GUAIFENESIN [Concomitant]
     Dosage: 30-600 MG ,  FREQUENCY: EVERY 12 HOURS
     Route: 048
  51. HYDROXYZINE HCL [Concomitant]
     Route: 048
  52. HYDROXYZINE PAMOATE [Concomitant]
     Route: 048
  53. LAC-HYDRIN [Concomitant]
     Route: 061
  54. MIRALAX [Concomitant]
     Route: 048
  55. MOBIC [Concomitant]
     Route: 048
  56. NAPROXEN [Concomitant]
     Route: 048
  57. NAPROXEN [Concomitant]
     Route: 048
  58. NAPROXEN [Concomitant]
     Route: 048
  59. PERCOCET [Concomitant]
     Indication: PAIN
     Dosage: 10-325 MG TID TO QID
     Route: 048
  60. NYSTATIN [Concomitant]
     Indication: GLOSSITIS
     Route: 048
  61. PHENERGAN [Concomitant]
     Indication: NAUSEA
     Dosage: EVERY 6-8 HOURS, DOSE AS USED: 25 MG
     Route: 048
  62. PHENERGAN [Concomitant]
     Indication: VOMITING
     Dosage: EVERY 6-8 HOURS, DOSE AS USED: 25 MG
     Route: 048
  63. PHENAZOPYRIDINE HCL TAB [Concomitant]
     Route: 048
  64. TIZANIDINE HCL [Concomitant]
     Route: 048
  65. TIZANIDINE HCL [Concomitant]
     Route: 048
  66. ZITHROMAX [Concomitant]
     Route: 048
  67. CELEXA [Concomitant]
     Route: 048
  68. CELEXA [Concomitant]
     Route: 048
  69. CUTIVATE [Concomitant]
     Dates: start: 20030920
  70. IBUPROFEN [Concomitant]
  71. K-DUR [Concomitant]
     Route: 048
  72. METAMUCIL PLUS CALCIUM [Concomitant]
     Indication: CONSTIPATION
  73. METAMUCIL PLUS CALCIUM [Concomitant]
     Dosage: 2 CAP IN THE AM AND 2 CAP IN PM, DOSE AS USED: 2 DF  TWO TIMES A DAY
     Route: 048
  74. SINGULAIR [Concomitant]
     Route: 048
  75. TRIAMTERENE [Concomitant]
     Dosage: 75-50 MG
  76. ZANTAC [Concomitant]
     Route: 048
  77. ZANTAC [Concomitant]
     Route: 048
  78. INFLUENZA [Concomitant]
     Dates: start: 20041212
  79. KLONOPIN [Concomitant]
  80. BUSPAR [Concomitant]
  81. BUSPIRONE HCL [Concomitant]
     Route: 048
  82. GEODON [Concomitant]
     Indication: DISSOCIATIVE DISORDER
     Route: 048
  83. HALOPERIDOL [Concomitant]
     Route: 048
  84. TYLENOL (CAPLET) [Concomitant]
     Indication: INSOMNIA
     Dosage: 500-25 MG,  FREQUENCY: AT NIGHT
     Route: 048
  85. DIOVAN [Concomitant]
     Route: 048
  86. LIDEX [Concomitant]
     Route: 061
  87. ATARAX [Concomitant]
  88. OXYCODONE HCL AND ACETAMINOPHEN [Concomitant]
     Dosage: 5/325 MG,  FREQUENCY: EVERY 4 - 6 HOURS
     Route: 048
  89. ZELNORM [Concomitant]
     Dosage: FREQUENCY: TWO TIMES A DAY
  90. SENNA PLUS [Concomitant]
  91. TOPAMAX [Concomitant]
     Route: 048
  92. DICLOFENAC [Concomitant]
     Route: 048
  93. MEPERIDINE HCL [Concomitant]
  94. BUPROPION [Concomitant]
  95. GEMFIBROZIL [Concomitant]
  96. LUNESTA [Concomitant]
     Route: 048
  97. LUNESTA [Concomitant]
     Route: 048
  98. SONATA [Concomitant]
  99. NORTRIPTYLINE HCL [Concomitant]
  100. PLAVIX [Concomitant]
     Route: 048
  101. NEURONTIN [Concomitant]
     Route: 048
  102. MIRALAX [Concomitant]
  103. HYDROXYZINE PAM [Concomitant]
     Route: 048
  104. SULFAMETHOXAZOLE AND TRIMETHOPRIM [Concomitant]
  105. CELEBREX [Concomitant]
  106. ABILIFY [Concomitant]
     Route: 048
  107. ULTRACET [Concomitant]
  108. TIZANIDINE HCL [Concomitant]
  109. THIORIDAZINE HCL [Concomitant]
     Route: 048
  110. GARPENTIN [Concomitant]
  111. KEPPRA [Concomitant]
  112. LYRICA [Concomitant]
  113. LEVAQUIN [Concomitant]
     Route: 048
     Dates: start: 20011027
  114. GLUCOPHAGE [Concomitant]
  115. TRAZODONE HCL [Concomitant]
     Dates: start: 19970221
  116. CARDURA [Concomitant]
     Dates: start: 19970221
  117. VIOXX [Concomitant]
     Dates: end: 20030101
  118. TEGRETOL [Concomitant]
     Dates: end: 20030101
  119. LASIX [Concomitant]
     Dates: end: 20030101
  120. MAXZIDE [Concomitant]
     Dosage: ONE PO DAILY
  121. DESYREL [Concomitant]
  122. DESYREL [Concomitant]
  123. NICOTINE [Concomitant]
  124. COMBIVENT [Concomitant]
     Dosage: 2 PUFFS , FREQUENCY: EVERY FOUR HOURS
     Route: 055
  125. POTASSIUM CHLORIDE [Concomitant]
     Dates: start: 20050215
  126. SF-5000 PLUS CREAM [Concomitant]
  127. PANOKASE [Concomitant]

REACTIONS (15)
  - ABDOMINAL PAIN [None]
  - CEREBROVASCULAR ACCIDENT [None]
  - CEREBROVASCULAR DISORDER [None]
  - CHEST PAIN [None]
  - DIABETES MELLITUS [None]
  - DIABETIC NEUROPATHY [None]
  - FIBROMYALGIA [None]
  - GASTROINTESTINAL PAIN [None]
  - HYPERTENSION [None]
  - NON-CARDIAC CHEST PAIN [None]
  - PANCREATITIS CHRONIC [None]
  - POLYP COLORECTAL [None]
  - SUICIDAL BEHAVIOUR [None]
  - TRANSIENT ISCHAEMIC ATTACK [None]
  - TYPE 2 DIABETES MELLITUS [None]
